FAERS Safety Report 18221941 (Version 1)
Quarter: 2020Q3

REPORT INFORMATION
  Report Type: Spontaneous
  Country: US (occurrence: US)
  Receive Date: 20200902
  Receipt Date: 20200902
  Transmission Date: 20201103
  Serious: Yes (Other)
  Sender: FDA-Public Use
  Company Number: US-ADVANZ PHARMA-202008008347

PATIENT

DRUGS (1)
  1. HYDROXYCHLOROQUINE [Suspect]
     Active Substance: HYDROXYCHLOROQUINE
     Indication: LYME DISEASE
     Dosage: UNK, (PLAQUENIL)

REACTIONS (3)
  - Electrocardiogram QT interval abnormal [Unknown]
  - Malaise [Unknown]
  - Off label use [Unknown]
